FAERS Safety Report 9311948 (Version 5)
Quarter: 2015Q3

REPORT INFORMATION
  Report Type: Report from Study
  Country: US (occurrence: US)
  Receive Date: 20130528
  Receipt Date: 20150921
  Transmission Date: 20151125
  Serious: Yes (Death, Other)
  Sender: FDA-Public Use
  Company Number: US-ASTELLAS-2013US005552

PATIENT
  Age: 66 Year
  Sex: Male

DRUGS (40)
  1. ERLOTINIB [Suspect]
     Active Substance: ERLOTINIB
     Indication: MALIGNANT RESPIRATORY TRACT NEOPLASM
     Route: 065
     Dates: start: 20050509
  2. CARBOPLATIN. [Concomitant]
     Active Substance: CARBOPLATIN
     Indication: MALIGNANT RESPIRATORY TRACT NEOPLASM
     Route: 065
     Dates: start: 20040811
  3. AVASTIN [Suspect]
     Active Substance: BEVACIZUMAB
     Dosage: UNK, UNKNOWN FREQ.
     Route: 065
     Dates: start: 20051201
  4. AVASTIN [Suspect]
     Active Substance: BEVACIZUMAB
     Dosage: UNK, UNKNOWN FREQ.
     Route: 065
     Dates: start: 20060209
  5. TAXOTERE [Concomitant]
     Active Substance: DOCETAXEL
     Indication: PRODUCT USED FOR UNKNOWN INDICATION
     Route: 065
  6. FLUOROURACIL. [Concomitant]
     Active Substance: FLUOROURACIL
     Indication: PRODUCT USED FOR UNKNOWN INDICATION
     Route: 065
  7. MITOMYCIN. [Concomitant]
     Active Substance: MITOMYCIN
     Indication: PRODUCT USED FOR UNKNOWN INDICATION
     Route: 065
  8. KYTRIL [Concomitant]
     Active Substance: GRANISETRON HYDROCHLORIDE
     Indication: PRODUCT USED FOR UNKNOWN INDICATION
     Dosage: 1 MG, EVERY 12 DAYS
     Route: 065
  9. ZOFRAN [Concomitant]
     Active Substance: ONDANSETRON HYDROCHLORIDE
     Indication: NAUSEA
     Route: 065
  10. CALADRYL                           /00138901/ [Concomitant]
     Indication: PRODUCT USED FOR UNKNOWN INDICATION
     Dosage: UNK UNK, UNKNOWN FREQ.
     Route: 065
  11. ERYTHROMYCIN. [Concomitant]
     Active Substance: ERYTHROMYCIN
     Indication: PRODUCT USED FOR UNKNOWN INDICATION
     Route: 065
  12. PERIFOSINE [Concomitant]
     Active Substance: PERIFOSINE
     Indication: PRODUCT USED FOR UNKNOWN INDICATION
     Dosage: UNK UNK, UNKNOWN FREQ.
     Route: 065
  13. HEPARIN [Concomitant]
     Active Substance: HEPARIN SODIUM
     Indication: PRODUCT USED FOR UNKNOWN INDICATION
     Dosage: UNK UNK, UNKNOWN FREQ.
     Route: 065
  14. AVASTIN [Suspect]
     Active Substance: BEVACIZUMAB
     Indication: MALIGNANT RESPIRATORY TRACT NEOPLASM
     Route: 042
     Dates: start: 20050817
  15. AVASTIN [Suspect]
     Active Substance: BEVACIZUMAB
     Dosage: UNK, UNKNOWN FREQ.
     Route: 065
     Dates: start: 20050909
  16. DECADRON [Concomitant]
     Active Substance: DEXAMETHASONE
     Indication: PRODUCT USED FOR UNKNOWN INDICATION
     Dosage: 8 MG, AS DIRECTED
     Route: 048
  17. FENTANYL. [Concomitant]
     Active Substance: FENTANYL
     Indication: PRODUCT USED FOR UNKNOWN INDICATION
     Dosage: 150 MEQ, EVERY HOUR
     Route: 065
  18. AVASTIN [Suspect]
     Active Substance: BEVACIZUMAB
     Dosage: UNK, UNKNOWN FREQ.
     Route: 065
     Dates: start: 20060126
  19. ERLOTINIB [Suspect]
     Active Substance: ERLOTINIB
     Indication: NON-SMALL CELL LUNG CANCER
     Dosage: UNK, UNKNOWN FREQ.
     Route: 065
  20. ERLOTINIB [Suspect]
     Active Substance: ERLOTINIB
     Dosage: UNK, UNKNOWN FREQ.
     Route: 065
     Dates: start: 20050606
  21. ERLOTINIB [Suspect]
     Active Substance: ERLOTINIB
     Route: 065
     Dates: start: 20050817
  22. REGLAN [Suspect]
     Active Substance: METOCLOPRAMIDE HYDROCHLORIDE
     Indication: NAUSEA
     Route: 048
     Dates: start: 20050608
  23. REGLAN [Suspect]
     Active Substance: METOCLOPRAMIDE HYDROCHLORIDE
     Dosage: 10 UNK, UNK
     Route: 048
     Dates: start: 20040920
  24. KENALOG [Concomitant]
     Active Substance: TRIAMCINOLONE ACETONIDE
     Indication: PRODUCT USED FOR UNKNOWN INDICATION
     Route: 065
  25. NORMAL SALINE [Concomitant]
     Active Substance: SODIUM CHLORIDE
     Indication: PRODUCT USED FOR UNKNOWN INDICATION
     Dosage: 100 CC, UNK, UNKNOWN FREQ.
  26. AVASTIN [Suspect]
     Active Substance: BEVACIZUMAB
     Indication: NON-SMALL CELL LUNG CANCER
     Route: 065
     Dates: start: 20050819
  27. AVASTIN [Suspect]
     Active Substance: BEVACIZUMAB
     Dosage: UNK, UNKNOWN FREQ.
     Route: 065
     Dates: start: 20051027
  28. AVASTIN [Suspect]
     Active Substance: BEVACIZUMAB
  29. GEMZAR [Concomitant]
     Active Substance: GEMCITABINE HYDROCHLORIDE
     Indication: MALIGNANT RESPIRATORY TRACT NEOPLASM
     Dosage: 2000 MG, WEEKLY
     Route: 065
     Dates: start: 20040811
  30. ANZEMET [Concomitant]
     Active Substance: DOLASETRON MESYLATE
     Indication: PRODUCT USED FOR UNKNOWN INDICATION
     Route: 042
  31. EMEND [Concomitant]
     Active Substance: APREPITANT
     Indication: PRODUCT USED FOR UNKNOWN INDICATION
     Dosage: 3 DAY PACK, UNK, UNKNOWN FREQ.
     Route: 065
  32. NEULASTA [Suspect]
     Active Substance: PEGFILGRASTIM
     Indication: PRODUCT USED FOR UNKNOWN INDICATION
     Dosage: 6 MG, WEEKLY
     Route: 058
     Dates: end: 20041011
  33. ZOMETA [Concomitant]
     Active Substance: ZOLEDRONIC ACID
     Indication: PRODUCT USED FOR UNKNOWN INDICATION
     Dosage: UNK, UNKNOWN FREQ.
     Route: 065
  34. ROXICET [Concomitant]
     Active Substance: ACETAMINOPHEN\OXYCODONE HYDROCHLORIDE
     Indication: PRODUCT USED FOR UNKNOWN INDICATION
     Route: 048
  35. ATIVAN [Concomitant]
     Active Substance: LORAZEPAM
     Indication: NAUSEA
     Dosage: 0.5 MG, AS NEEDED
     Route: 048
  36. MS CONTIN [Concomitant]
     Active Substance: MORPHINE SULFATE
     Indication: PRODUCT USED FOR UNKNOWN INDICATION
     Route: 065
  37. AVASTIN [Suspect]
     Active Substance: BEVACIZUMAB
     Dosage: UNK, UNKNOWN FREQ.
     Route: 065
     Dates: start: 20051111
  38. BENADRYL [Concomitant]
     Active Substance: DIPHENHYDRAMINE HYDROCHLORIDE
     Indication: PRODUCT USED FOR UNKNOWN INDICATION
     Dosage: UNK UNK, AS NEEDED
     Route: 065
  39. SOLU-MEDROL [Concomitant]
     Active Substance: METHYLPREDNISOLONE SODIUM SUCCINATE
     Indication: PRODUCT USED FOR UNKNOWN INDICATION
     Route: 042
  40. OXYCONTIN [Concomitant]
     Active Substance: OXYCODONE HYDROCHLORIDE
     Indication: PAIN
     Dosage: UNK UNK, UNKNOWN FREQ.
     Route: 065

REACTIONS (49)
  - Drug intolerance [Unknown]
  - Metastasis [Unknown]
  - Cheilosis [Recovering/Resolving]
  - Asthenia [Unknown]
  - Back pain [Unknown]
  - Metastases to lung [Unknown]
  - No therapeutic response [Unknown]
  - Nail bed bleeding [Unknown]
  - Neck pain [Unknown]
  - Tenderness [Unknown]
  - Abdominal pain [Unknown]
  - Constipation [Unknown]
  - Blood glucose increased [Unknown]
  - Emphysema [Unknown]
  - Metastases to bone [Unknown]
  - Nodule [Unknown]
  - Insomnia [Unknown]
  - Rash [Unknown]
  - Fatigue [Unknown]
  - Off label use [Unknown]
  - Death [Fatal]
  - Hepatic cirrhosis [Unknown]
  - Malignant neoplasm progression [Unknown]
  - Granuloma [Unknown]
  - Increased tendency to bruise [Unknown]
  - Drug eruption [Unknown]
  - Musculoskeletal pain [Unknown]
  - Arthralgia [Unknown]
  - Decreased appetite [Unknown]
  - Hepatocellular carcinoma [Unknown]
  - Nausea [Unknown]
  - Onycholysis [Unknown]
  - Vascular calcification [Unknown]
  - Dysphagia [Unknown]
  - Cachexia [Unknown]
  - Cough [Unknown]
  - Diarrhoea [Unknown]
  - Neuropathy peripheral [Unknown]
  - Hiatus hernia [Unknown]
  - Mass [Unknown]
  - Increased viscosity of bronchial secretion [Unknown]
  - Eating disorder [Recovering/Resolving]
  - Pain [Unknown]
  - Weight decreased [Unknown]
  - Vomiting [Unknown]
  - Chronic obstructive pulmonary disease [Unknown]
  - Gynaecomastia [Unknown]
  - Impaired gastric emptying [Unknown]
  - Abdominal distension [Unknown]

NARRATIVE: CASE EVENT DATE: 20040802
